FAERS Safety Report 9705037 (Version 2)
Quarter: 2013Q4

REPORT INFORMATION
  Report Type: Spontaneous
  Country: US (occurrence: US)
  Receive Date: 20131122
  Receipt Date: 20131201
  Transmission Date: 20140711
  Serious: No
  Sender: FDA-Public Use
  Company Number: US-ABBVIE-13P-163-1138617-00

PATIENT
  Age: 48 Year
  Sex: Male
  Weight: 81.72 kg

DRUGS (5)
  1. ANDROGEL [Suspect]
     Indication: SECONDARY HYPOGONADISM
     Dates: start: 201307
  2. ANDROGEL [Suspect]
     Dosage: FOUR PUMPS PER DAY
  3. ANDROGEL [Suspect]
     Dosage: FIVE PUMPS PER DAY
  4. ANDROGEL [Suspect]
     Dosage: SIX PUMPS PER DAY
     Dates: start: 201308
  5. ANDROGEL [Suspect]
     Indication: PRODUCT USED FOR UNKNOWN INDICATION

REACTIONS (2)
  - Incorrect dose administered [Unknown]
  - Drug ineffective [Unknown]
